FAERS Safety Report 7954032-7 (Version None)
Quarter: 2011Q4

REPORT INFORMATION
  Report Type: 
  Country: None (occurrence: None)
  Receive Date: 20111202
  Receipt Date: 20110127
  Transmission Date: 20120403
  Serious: No
  Sender: FDA-Public Use
  Company Number: US-BAYER-2011-004501

PATIENT
  Age: 46 Year
  Sex: Female

DRUGS (3)
  1. INTERFERON BETA-1B [Suspect]
     Indication: MULTIPLE SCLEROSIS
     Dosage: UNK
     Route: 058
     Dates: start: 20101012, end: 20101116
  2. INTERFERON BETA-1B [Suspect]
     Dosage: 2 MIU, QOD
     Route: 058
     Dates: start: 20110124, end: 20110214
  3. IBUPROFEN (ADVIL) [Concomitant]

REACTIONS (3)
  - MYALGIA [None]
  - INFLUENZA LIKE ILLNESS [None]
  - PAIN [None]
